FAERS Safety Report 9514519 (Version 1)
Quarter: 2013Q3

REPORT INFORMATION
  Report Type: Spontaneous
  Country: ES (occurrence: ES)
  Receive Date: 20130911
  Receipt Date: 20130911
  Transmission Date: 20140515
  Serious: Yes (Other)
  Sender: FDA-Public Use
  Company Number: ES-ABBOTT-13X-144-1143330-00

PATIENT
  Age: 56 Year
  Sex: Female

DRUGS (1)
  1. SECALIP [Suspect]
     Indication: DYSLIPIDAEMIA
     Route: 048
     Dates: start: 20130515, end: 20130613

REACTIONS (1)
  - Alopecia [Recovered/Resolved]
